FAERS Safety Report 21047489 (Version 2)
Quarter: 2022Q3

REPORT INFORMATION
  Report Type: Spontaneous
  Country: US (occurrence: US)
  Receive Date: 20220706
  Receipt Date: 20220728
  Transmission Date: 20221027
  Serious: Yes (Other)
  Sender: FDA-Public Use
  Company Number: US-drreddys-LIT/USA/22/0151900

PATIENT
  Age: 21 Year
  Sex: Male

DRUGS (4)
  1. RISPERIDONE [Suspect]
     Active Substance: RISPERIDONE
     Indication: Schizophrenia
     Dosage: RISPERIDONE DOSAGE WAS CAUTIOUSLY TITRATED TO 10 MG/D, DIVIDED
  2. RISPERIDONE [Suspect]
     Active Substance: RISPERIDONE
     Dosage: RISPERIDONE DOSAGE WAS CAUTIOUSLY TITRATED TO 10 MG/D, DIVIDED
  3. FLUPHENAZINE [Suspect]
     Active Substance: FLUPHENAZINE
     Indication: Schizophrenia
  4. ARIPIPRAZOLE [Suspect]
     Active Substance: ARIPIPRAZOLE
     Indication: Schizophrenia

REACTIONS (2)
  - Orthostatic hypotension [Unknown]
  - Therapy non-responder [Unknown]
